FAERS Safety Report 7367100-8 (Version None)
Quarter: 2011Q1

REPORT INFORMATION
  Report Type: 
  Country: None (occurrence: None)
  Receive Date: 20110322
  Receipt Date: 20110308
  Transmission Date: 20110831
  Serious: Yes (Hospitalization)
  Sender: FDA-Public Use
  Company Number: US-JNJFOC-20060203173

PATIENT
  Sex: Female
  Weight: 42.1 kg

DRUGS (3)
  1. INFLIXIMAB [Suspect]
     Route: 042
  2. AZATHIOPRINE [Concomitant]
     Indication: PRODUCT USED FOR UNKNOWN INDICATION
  3. INFLIXIMAB [Suspect]
     Indication: COLITIS ULCERATIVE
     Dosage: TOAL 10 DOSES
     Route: 042

REACTIONS (1)
  - COLITIS ULCERATIVE [None]
